FAERS Safety Report 12079255 (Version 1)
Quarter: 2016Q1

REPORT INFORMATION
  Report Type: Report from Study
  Country: JP (occurrence: JP)
  Receive Date: 20160216
  Receipt Date: 20160216
  Transmission Date: 20160526
  Serious: Yes (Hospitalization, Other)
  Sender: FDA-Public Use
  Company Number: JP-EISAI MEDICAL RESEARCH-EC-2016-014352

PATIENT
  Age: 48 Year
  Sex: Female
  Weight: 51 kg

DRUGS (11)
  1. AZILVA [Concomitant]
     Active Substance: AZILSARTAN KAMEDOXOMIL
  2. TAPENTA [Concomitant]
     Active Substance: TAPENTADOL HYDROCHLORIDE
  3. G-LASTA [Concomitant]
     Active Substance: PEGFILGRASTIM
  4. HALAVEN [Suspect]
     Active Substance: ERIBULIN MESYLATE
     Indication: TUBULAR BREAST CARCINOMA
     Route: 041
     Dates: start: 20150728, end: 20151124
  5. TRAMAL [Concomitant]
     Active Substance: TRAMADOL
  6. REBAMIPIDE [Concomitant]
     Active Substance: REBAMIPIDE
  7. RANMARK [Concomitant]
     Active Substance: DENOSUMAB
  8. LOXOPROFEN SODIUM HYDRATE [Concomitant]
     Active Substance: LOXOPROFEN SODIUM DIHYDRATE
  9. LYRICA [Concomitant]
     Active Substance: PREGABALIN
  10. AMLODIPINE [Concomitant]
     Active Substance: AMLODIPINE BESYLATE
  11. DENOTAS [Concomitant]
     Active Substance: CALCIUM CARBONATE\CHOLECALCIFEROL\MAGNESIUM CARBONATE

REACTIONS (3)
  - Diplegia [Recovering/Resolving]
  - Carbohydrate antigen 15-3 increased [Unknown]
  - Neutropenia [Recovered/Resolved]

NARRATIVE: CASE EVENT DATE: 20150804
